FAERS Safety Report 6267378-8 (Version None)
Quarter: 2009Q3

REPORT INFORMATION
  Report Type: 
  Country: None (occurrence: None)
  Receive Date: 20090710
  Receipt Date: 20090702
  Transmission Date: 20100115
  Serious: Yes (Other)
  Sender: FDA-Public Use
  Company Number: 2009-0665

PATIENT
  Age: 57 Year
  Sex: Female

DRUGS (1)
  1. SOMATULINE AUTOGEL 120MG(LANREOTIDE) (LANREOTIDE ACETATE) [Suspect]
     Indication: NEUROENDOCRINE TUMOUR
     Dosage: (120 MG, MONTHLY) SUBCUTANEOUS
     Route: 058
     Dates: end: 20090107

REACTIONS (2)
  - ASTHMA [None]
  - LARYNGITIS [None]
